FAERS Safety Report 11655995 (Version 2)
Quarter: 2016Q1

REPORT INFORMATION
  Report Type: Report from Study
  Country: US (occurrence: US)
  Receive Date: 20151023
  Receipt Date: 20160105
  Transmission Date: 20160525
  Serious: Yes (Hospitalization)
  Sender: FDA-Public Use
  Company Number: US-ACTELION-A-NJ2015-125949

PATIENT
  Age: 81 Year
  Sex: Female

DRUGS (2)
  1. DILTIAZEM [Concomitant]
     Active Substance: DILTIAZEM
  2. TRACLEER [Suspect]
     Active Substance: BOSENTAN
     Indication: PULMONARY ARTERIAL HYPERTENSION
     Dosage: UNK
     Route: 048
     Dates: start: 20110318

REACTIONS (2)
  - Gastrointestinal disorder [Recovered/Resolved]
  - Gastritis [Unknown]
